FAERS Safety Report 6982402-2 (Version None)
Quarter: 2010Q3

REPORT INFORMATION
  Report Type: 
  Country: None (occurrence: None)
  Receive Date: 20100914
  Receipt Date: 20100108
  Transmission Date: 20110219
  Serious: No
  Sender: FDA-Public Use
  Company Number: US-PFIZER INC-2010004304

PATIENT
  Sex: Female
  Weight: 65.76 kg

DRUGS (4)
  1. LYRICA [Suspect]
     Indication: HYPERTENSION
     Dosage: 25 MG, 1X/DAY
     Route: 048
     Dates: start: 20070101
  2. LYRICA [Suspect]
     Indication: STRESS
  3. LYRICA [Suspect]
     Indication: TENSION
  4. LYRICA [Suspect]
     Indication: TINNITUS

REACTIONS (3)
  - INSOMNIA [None]
  - MIGRAINE [None]
  - TINNITUS [None]
